FAERS Safety Report 19279125 (Version 1)
Quarter: 2021Q2

REPORT INFORMATION
  Report Type: Spontaneous
  Country: US (occurrence: US)
  Receive Date: 20210520
  Receipt Date: 20210520
  Transmission Date: 20210717
  Serious: No
  Sender: FDA-Public Use
  Company Number: US-TEVA-2021-US-1911264

PATIENT
  Age: 73 Year
  Sex: Male

DRUGS (1)
  1. CINQAIR [Suspect]
     Active Substance: RESLIZUMAB
     Route: 042

REACTIONS (1)
  - Infusion site pain [Recovered/Resolved]
